FAERS Safety Report 24251265 (Version 1)
Quarter: 2024Q3

REPORT INFORMATION
  Report Type: Spontaneous
  Country: US (occurrence: US)
  Receive Date: 20240826
  Receipt Date: 20240826
  Transmission Date: 20241017
  Serious: No
  Sender: Harrow Health
  Company Number: US-IMP-2024000323

PATIENT
  Sex: Male

DRUGS (1)
  1. FLAREX [Suspect]
     Active Substance: FLUOROMETHOLONE ACETATE
     Indication: Product used for unknown indication
     Dosage: 0.1%/ 1 DROP IN EACH EYE 4 TIMES A DAY
     Route: 047

REACTIONS (1)
  - Circumstance or information capable of leading to medication error [Unknown]
